FAERS Safety Report 5704415-0 (Version None)
Quarter: 2008Q2

REPORT INFORMATION
  Report Type: 
  Country: None (occurrence: None)
  Receive Date: 20080414
  Receipt Date: 20080409
  Transmission Date: 20081010
  Serious: Yes (Life-Threatening)
  Sender: FDA-Public Use
  Company Number: B0515148A

PATIENT
  Age: 49 Year
  Sex: Male
  Weight: 129 kg

DRUGS (9)
  1. AVANDIA [Suspect]
     Dosage: 8MG PER DAY
     Dates: start: 20070201
  2. ADALAT [Concomitant]
  3. DAPATABS [Concomitant]
  4. NOTEN [Concomitant]
  5. UNKNOWN MEDICATION [Concomitant]
  6. AMARYL [Concomitant]
  7. LASIX [Concomitant]
  8. MAREVAN [Concomitant]
  9. PERINDOPRIL ERBUMINE [Concomitant]

REACTIONS (1)
  - PULMONARY EMBOLISM [None]
